FAERS Safety Report 4417016-1 (Version None)
Quarter: 2004Q2

REPORT INFORMATION
  Report Type: 
  Country: None (occurrence: None)
  Receive Date: 20040629
  Receipt Date: 20040219
  Transmission Date: 20050107
  Serious: No
  Sender: FDA-Public Use
  Company Number: US067161

PATIENT
  Age: 85 Year
  Sex: Female

DRUGS (3)
  1. ARANESP [Suspect]
     Indication: ANAEMIA OF MALIGNANT DISEASE
     Dosage: 200 MCG, 1 IN 2 WEEKS
     Dates: start: 20030401
  2. RALOXIGEN HCL [Concomitant]
  3. LANSOPRAZOLE [Concomitant]

REACTIONS (1)
  - HAIR DISORDER [None]
